FAERS Safety Report 8066385-2 (Version None)
Quarter: 2012Q1

REPORT INFORMATION
  Report Type: 
  Country: None (occurrence: None)
  Receive Date: 20120124
  Receipt Date: 20120124
  Transmission Date: 20120608
  Serious: Yes (Death)
  Sender: FDA-Public Use
  Company Number: None

PATIENT
  Age: 68 Year
  Sex: Male
  Weight: 90 kg

DRUGS (1)
  1. VEMURAFENIB [Suspect]
     Indication: METASTATIC MALIGNANT MELANOMA
     Dosage: 960 MG
     Route: 048
     Dates: start: 20111229, end: 20120111

REACTIONS (5)
  - MENTAL STATUS CHANGES [None]
  - MEMORY IMPAIRMENT [None]
  - AGITATION [None]
  - SWELLING FACE [None]
  - HYPOTENSION [None]
